FAERS Safety Report 7935406-7 (Version None)
Quarter: 2011Q4

REPORT INFORMATION
  Report Type: 
  Country: None (occurrence: None)
  Receive Date: 20111122
  Receipt Date: 20111116
  Transmission Date: 20120403
  Serious: Yes (Death, Hospitalization)
  Sender: FDA-Public Use
  Company Number: CA-MERCK-1111USA02259

PATIENT
  Age: 30 Year
  Sex: Female

DRUGS (3)
  1. LIPIDIL [Suspect]
     Indication: DYSLIPIDAEMIA
     Route: 065
     Dates: start: 20080101
  2. [THERAPY UNSPECIFIED] [Concomitant]
     Route: 065
  3. ZOCOR [Suspect]
     Indication: DYSLIPIDAEMIA
     Route: 065
     Dates: start: 20080101

REACTIONS (3)
  - STEVENS-JOHNSON SYNDROME [None]
  - PEMPHIGOID [None]
  - DEATH [None]
